FAERS Safety Report 19922396 (Version 1)
Quarter: 2021Q4

REPORT INFORMATION
  Report Type: Spontaneous
  Country: US (occurrence: US)
  Receive Date: 20211005
  Receipt Date: 20211005
  Transmission Date: 20220303
  Serious: Yes (Life-Threatening)
  Sender: FDA-Public Use
  Company Number: None

PATIENT
  Age: 59 Year
  Sex: Male
  Weight: 91 kg

DRUGS (3)
  1. BARICITINIB [Suspect]
     Active Substance: BARICITINIB
     Indication: COVID-19 pneumonia
     Route: 048
     Dates: start: 20210925, end: 20211001
  2. DEXAMETHASONE [Concomitant]
     Active Substance: DEXAMETHASONE
     Dates: start: 20210925, end: 20211004
  3. enoxaparin 40 mg daily [Concomitant]
     Dates: start: 20210925, end: 20210930

REACTIONS (5)
  - Dyspnoea [None]
  - Aphasia [None]
  - Thrombosis [None]
  - Hemiparesis [None]
  - Hypoxia [None]

NARRATIVE: CASE EVENT DATE: 20210930
